FAERS Safety Report 18555014 (Version 1)
Quarter: 2020Q4

REPORT INFORMATION
  Report Type: Spontaneous
  Country: FR (occurrence: FR)
  Receive Date: 20201127
  Receipt Date: 20201127
  Transmission Date: 20210114
  Serious: Yes (Other)
  Sender: FDA-Public Use
  Company Number: FR-PUMA BIOTECHNOLOGY, INC.-2020FR007745

PATIENT
  Sex: Female

DRUGS (1)
  1. NERATINIB [Suspect]
     Active Substance: NERATINIB
     Indication: PRODUCT USED FOR UNKNOWN INDICATION
     Dosage: 240 MG, DAILY
     Route: 065
     Dates: start: 20200929

REACTIONS (2)
  - Cell death [Recovering/Resolving]
  - Diarrhoea [Recovering/Resolving]
